FAERS Safety Report 5689970-1 (Version None)
Quarter: 2008Q2

REPORT INFORMATION
  Report Type: 
  Country: None (occurrence: None)
  Receive Date: 20080401
  Receipt Date: 20070301
  Transmission Date: 20081010
  Serious: No
  Sender: FDA-Public Use
  Company Number: A0641397A

PATIENT

DRUGS (1)
  1. FLOVENT [Suspect]

REACTIONS (1)
  - DYSPHONIA [None]
